FAERS Safety Report 6690594-8 (Version None)
Quarter: 2010Q2

REPORT INFORMATION
  Report Type: 
  Country: None (occurrence: None)
  Receive Date: 20100421
  Receipt Date: 20100414
  Transmission Date: 20101027
  Serious: Yes (Hospitalization)
  Sender: FDA-Public Use
  Company Number: B0646459A

PATIENT
  Sex: Female
  Weight: 64.9 kg

DRUGS (6)
  1. ELTROMBOPAG [Suspect]
     Indication: DRUG USE FOR UNKNOWN INDICATION
     Route: 048
     Dates: start: 20100302
  2. PREDNISOLONE [Concomitant]
     Indication: IDIOPATHIC THROMBOCYTOPENIC PURPURA
     Dosage: 15MG PER DAY
     Dates: start: 20090701
  3. DIOVAN [Concomitant]
     Indication: HYPERTENSION
     Dosage: 80MG PER DAY
     Route: 048
     Dates: start: 20090909, end: 20100306
  4. BETA BLOCKER [Concomitant]
     Indication: ANXIETY
     Route: 065
  5. XANAX [Concomitant]
     Indication: ANXIETY
     Dosage: .25MG TWICE PER DAY
     Route: 048
     Dates: start: 20090818, end: 20100306
  6. COLCHICINE [Concomitant]
     Indication: IDIOPATHIC THROMBOCYTOPENIC PURPURA
     Dosage: .5MG PER DAY
     Route: 048
     Dates: start: 20090818, end: 20100306

REACTIONS (5)
  - DEHYDRATION [None]
  - NAUSEA [None]
  - OLIGURIA [None]
  - RENAL FAILURE ACUTE [None]
  - VOMITING [None]
